FAERS Safety Report 25180350 (Version 2)
Quarter: 2025Q2

REPORT INFORMATION
  Report Type: Spontaneous
  Country: US (occurrence: US)
  Receive Date: 20250409
  Receipt Date: 20250505
  Transmission Date: 20250717
  Serious: No
  Sender: CALLIDITAS THERAPEUTICS AB
  Company Number: US-Calliditas-2025CAL00042

PATIENT
  Age: 45 Year
  Sex: Male

DRUGS (15)
  1. TARPEYO [Suspect]
     Active Substance: BUDESONIDE
     Indication: IgA nephropathy
     Route: 048
     Dates: start: 20241010
  2. PROGRAF [Concomitant]
     Active Substance: TACROLIMUS
  3. MYCOPHENOLIC ACID [Concomitant]
     Active Substance: MYCOPHENOLIC ACID
  4. SENSIPAR [Concomitant]
     Active Substance: CINACALCET HYDROCHLORIDE
  5. ALLOPURINOL [Concomitant]
     Active Substance: ALLOPURINOL
  6. FARXIGA [Concomitant]
     Active Substance: DAPAGLIFLOZIN PROPANEDIOL
  7. CALCITRIOL [Concomitant]
     Active Substance: CALCITRIOL
  8. VITAMIN B [Concomitant]
     Active Substance: VITAMIN B
  9. ZINC [Concomitant]
     Active Substance: ZINC
  10. CHOLECALCIFEROL [Concomitant]
     Active Substance: CHOLECALCIFEROL
  11. CALCIUM CARBONATE [Concomitant]
     Active Substance: CALCIUM CARBONATE
  12. MAGNESIUM [Concomitant]
     Active Substance: MAGNESIUM
  13. HERBALS\TURMERIC [Concomitant]
     Active Substance: HERBALS\TURMERIC
  14. MINOXIDIL [Concomitant]
     Active Substance: MINOXIDIL
  15. CLINDAMYCIN [Concomitant]
     Active Substance: CLINDAMYCIN

REACTIONS (7)
  - Somnolence [Unknown]
  - Product dose omission issue [Recovered/Resolved]
  - Muscle spasms [Not Recovered/Not Resolved]
  - Frustration tolerance decreased [Not Recovered/Not Resolved]
  - Anger [Not Recovered/Not Resolved]
  - Glomerular filtration rate decreased [Not Recovered/Not Resolved]
  - Blood magnesium decreased [Recovered/Resolved]

NARRATIVE: CASE EVENT DATE: 20250301
